FAERS Safety Report 18756372 (Version 4)
Quarter: 2021Q1

REPORT INFORMATION
  Report Type: Report from Study
  Country: US (occurrence: US)
  Receive Date: 20210119
  Receipt Date: 20210219
  Transmission Date: 20210419
  Serious: Yes (Hospitalization)
  Sender: FDA-Public Use
  Company Number: US-BIOGEN-2021BI00967151

PATIENT
  Age: 48 Year
  Sex: Male

DRUGS (3)
  1. TYSABRI [Suspect]
     Active Substance: NATALIZUMAB
     Indication: MULTIPLE SCLEROSIS
     Route: 065
     Dates: start: 20110204, end: 20110807
  2. TYSABRI [Suspect]
     Active Substance: NATALIZUMAB
     Dosage: INFUSED OVER 1 HOUR
     Route: 065
     Dates: start: 20121212
  3. TYSABRI [Suspect]
     Active Substance: NATALIZUMAB
     Route: 065
     Dates: start: 20210205

REACTIONS (3)
  - COVID-19 [Not Recovered/Not Resolved]
  - Acute respiratory failure [Not Recovered/Not Resolved]
  - Pneumonia aspiration [Unknown]

NARRATIVE: CASE EVENT DATE: 202101
